FAERS Safety Report 21860184 (Version 4)
Quarter: 2023Q1

REPORT INFORMATION
  Report Type: Report from Study
  Country: JP (occurrence: JP)
  Receive Date: 20230113
  Receipt Date: 20230206
  Transmission Date: 20230418
  Serious: Yes (Death, Hospitalization, Other)
  Sender: FDA-Public Use
  Company Number: JP-ONO-2023JP000650

PATIENT
  Age: 70 Year
  Sex: Female
  Weight: 56 kg

DRUGS (9)
  1. BRAFTOVI [Suspect]
     Active Substance: ENCORAFENIB
     Indication: Colon cancer
     Dosage: 225 MG, EVERYDAY
     Route: 048
     Dates: start: 20221222, end: 20230110
  2. MEKTOVI [Suspect]
     Active Substance: BINIMETINIB
     Indication: Colon cancer
     Dosage: 60 MG, EVERYDAY
     Route: 048
     Dates: start: 20221222, end: 20230110
  3. CETUXIMAB [Concomitant]
     Active Substance: CETUXIMAB
     Indication: Colon cancer
     Dosage: 360 MG
     Route: 065
     Dates: start: 20221222, end: 20230105
  4. REMERON [Concomitant]
     Active Substance: MIRTAZAPINE
     Dosage: 15 MG, EVERYDAY
     Route: 048
  5. MIYA-BM [Concomitant]
     Active Substance: CLOSTRIDIUM BUTYRICUM SPORES STRAIN M-55
     Dosage: 2 DF, Q8H
     Route: 048
  6. RABEPRAZOLE SODIUM [Concomitant]
     Active Substance: RABEPRAZOLE SODIUM
     Dosage: 10 MG, EVERYDAY
     Route: 048
  7. NAPROXEN [Concomitant]
     Active Substance: NAPROXEN
     Dosage: 100 MG, Q8H
     Route: 048
  8. LOPERAMIDE HYDROCHLORIDE [Concomitant]
     Active Substance: LOPERAMIDE HYDROCHLORIDE
     Dosage: 1 MG, Q12H
     Route: 048
  9. JARDIANCE [Concomitant]
     Active Substance: EMPAGLIFLOZIN
     Dosage: 10 MG, EVERYDAY
     Route: 048

REACTIONS (2)
  - Sepsis [Fatal]
  - Underdose [Unknown]

NARRATIVE: CASE EVENT DATE: 20221222
